FAERS Safety Report 25844784 (Version 4)
Quarter: 2025Q4

REPORT INFORMATION
  Report Type: Report from Study
  Country: US (occurrence: US)
  Receive Date: 20250925
  Receipt Date: 20251202
  Transmission Date: 20260118
  Serious: Yes (Other)
  Sender: ABBVIE
  Company Number: US-ABBVIE-6471129

PATIENT
  Age: 62 Year
  Sex: Male
  Weight: 70.306 kg

DRUGS (6)
  1. VYALEV [Suspect]
     Active Substance: FOSCARBIDOPA\FOSLEVODOPA
     Indication: Parkinson^s disease
     Dosage: LAST ADMIN DATE: 2025
     Route: 058
     Dates: start: 202503
  2. VYALEV [Suspect]
     Active Substance: FOSCARBIDOPA\FOSLEVODOPA
     Dosage: 24 HOUR INFUSION
     Route: 058
     Dates: start: 20250507
  3. VALIUM [Suspect]
     Active Substance: DIAZEPAM
     Indication: Anxiety
     Route: 065
  4. VALIUM [Suspect]
     Active Substance: DIAZEPAM
     Indication: Anxiety
     Dosage: TIME INTERVAL: AS NECESSARY: DOSE TAPERED
     Route: 065
  5. XANAX [Concomitant]
     Active Substance: ALPRAZOLAM
     Indication: Stress
  6. XANAX [Concomitant]
     Active Substance: ALPRAZOLAM
     Indication: Stress
     Dosage: DOSE TAPERING OFF

REACTIONS (13)
  - Drug abuser [Recovering/Resolving]
  - Infusion site pain [Not Recovered/Not Resolved]
  - Dyspnoea [Recovering/Resolving]
  - Mental impairment [Recovering/Resolving]
  - Depressed mood [Unknown]
  - Hypertension [Recovered/Resolved]
  - Anxiety [Unknown]
  - Fatigue [Recovering/Resolving]
  - Contraindicated product administered [Recovering/Resolving]
  - Somnolence [Recovering/Resolving]
  - Stress [Unknown]
  - Nervousness [Unknown]
  - Incorrect dose administered [Unknown]

NARRATIVE: CASE EVENT DATE: 20250101
